FAERS Safety Report 18844154 (Version 2)
Quarter: 2021Q2

REPORT INFORMATION
  Report Type: Spontaneous
  Country: US (occurrence: US)
  Receive Date: 20210204
  Receipt Date: 20210514
  Transmission Date: 20210717
  Serious: Yes (Other)
  Sender: FDA-Public Use
  Company Number: US-GLAXOSMITHKLINE-US2021GSK027923

PATIENT
  Sex: Female

DRUGS (10)
  1. RANITIDINE. [Suspect]
     Active Substance: RANITIDINE
     Indication: GASTROOESOPHAGEAL REFLUX DISEASE
     Dosage: 150 MG, QD
     Route: 065
     Dates: start: 200601, end: 202004
  2. RANITIDINE. [Suspect]
     Active Substance: RANITIDINE
     Dosage: UNK UNK, 1 OR 2 TIMES A DAY
     Route: 065
     Dates: start: 200601, end: 202004
  3. ZANTAC [Suspect]
     Active Substance: RANITIDINE HYDROCHLORIDE
     Dosage: UNK, 1 OR 2 TIMES A DAY
     Route: 065
     Dates: start: 200601, end: 202004
  4. RANITIDINE. [Suspect]
     Active Substance: RANITIDINE
     Dosage: UNK UNK, 1 OR 2 TIMES A DAY
     Route: 065
     Dates: start: 200601, end: 202004
  5. ZANTAC [Suspect]
     Active Substance: RANITIDINE HYDROCHLORIDE
     Indication: GASTROOESOPHAGEAL REFLUX DISEASE
     Dosage: 150 MG, QD
     Route: 065
     Dates: start: 200601, end: 202004
  6. RANITIDINE CAPSULE [Suspect]
     Active Substance: RANITIDINE
     Indication: GASTROOESOPHAGEAL REFLUX DISEASE
     Dosage: 150 MG, QD
     Route: 065
     Dates: start: 200601, end: 202004
  7. RANITIDINE. [Suspect]
     Active Substance: RANITIDINE
     Dosage: UNK UNK, 1 OR 2 TIMES A DAY
     Route: 065
     Dates: start: 200601, end: 202004
  8. RANITIDINE. [Suspect]
     Active Substance: RANITIDINE
     Indication: GASTROOESOPHAGEAL REFLUX DISEASE
     Dosage: 150 MG, QD
     Route: 065
     Dates: start: 200601, end: 202004
  9. RANITIDINE CAPSULE [Suspect]
     Active Substance: RANITIDINE
     Dosage: UNK, 1 OR 2 TIMES A DAY
     Route: 065
     Dates: start: 200601, end: 202004
  10. RANITIDINE. [Suspect]
     Active Substance: RANITIDINE
     Indication: GASTROOESOPHAGEAL REFLUX DISEASE
     Dosage: 150 MG, QD
     Route: 065
     Dates: start: 200601, end: 202004

REACTIONS (1)
  - Breast cancer [Unknown]
